FAERS Safety Report 5145279-6 (Version None)
Quarter: 2006Q4

REPORT INFORMATION
  Report Type: 
  Country: None (occurrence: None)
  Receive Date: 20061107
  Receipt Date: 20061026
  Transmission Date: 20070319
  Serious: Yes (Death, Hospitalization)
  Sender: FDA-Public Use
  Company Number: GR-ELI_LILLY_AND_COMPANY-GR200610004847

PATIENT
  Age: 62 Year
  Sex: Male
  Weight: 82 kg

DRUGS (3)
  1. CECLOR [Suspect]
     Indication: PROPHYLAXIS
     Dosage: 750 MG, 2/D
     Route: 048
     Dates: start: 20061001
  2. PONSTAN                                 /CAN/ [Concomitant]
     Route: 048
  3. DEPON [Concomitant]
     Route: 048

REACTIONS (2)
  - DEATH [None]
  - PYREXIA [None]
